FAERS Safety Report 9819495 (Version 3)
Quarter: 2014Q4

REPORT INFORMATION
  Report Type: Report from Study
  Country: US (occurrence: US)
  Receive Date: 20140115
  Receipt Date: 20141231
  Transmission Date: 20150529
  Serious: Yes (Life-Threatening, Hospitalization)
  Sender: FDA-Public Use
  Company Number: US-BAYER-2014-003671

PATIENT
  Age: 56 Year
  Sex: Female
  Weight: 100 kg

DRUGS (7)
  1. PRADAXA [Concomitant]
     Active Substance: DABIGATRAN ETEXILATE MESYLATE
     Dosage: 150 MG, BID
  2. POTASSIUM CHLORIDE. [Concomitant]
     Active Substance: POTASSIUM CHLORIDE
  3. ADEMPAS [Suspect]
     Active Substance: RIOCIGUAT
     Indication: PULMONARY HYPERTENSION
     Dosage: 2.0 MG, TID
     Route: 048
  4. ADEMPAS [Interacting]
     Active Substance: RIOCIGUAT
     Indication: PULMONARY HYPERTENSION
     Dosage: 2.5 MG, TID
  5. ISOSORBIDE [Interacting]
     Active Substance: ISOSORBIDE
     Indication: PULMONARY HYPERTENSION
     Dosage: 120 MG, TID
  6. EPLERENONE. [Concomitant]
     Active Substance: EPLERENONE
     Dosage: 50 MG, QD
  7. DIGOXIN. [Concomitant]
     Active Substance: DIGOXIN

REACTIONS (6)
  - Hypotension [Recovering/Resolving]
  - Fall [None]
  - Dyspnoea [None]
  - Drug interaction [None]
  - Loss of consciousness [None]
  - Respiratory arrest [Recovering/Resolving]

NARRATIVE: CASE EVENT DATE: 20131231
